FAERS Safety Report 6895191-7 (Version None)
Quarter: 2010Q3

REPORT INFORMATION
  Report Type: 
  Country: None (occurrence: None)
  Receive Date: 20100802
  Receipt Date: 20100720
  Transmission Date: 20110219
  Serious: Yes (Other)
  Sender: FDA-Public Use
  Company Number: PHHY2010US47728

PATIENT
  Sex: Female

DRUGS (3)
  1. ESTRADERM [Suspect]
     Dosage: 0.05 MG
     Route: 062
  2. PROTONIX [Concomitant]
  3. DARVOCET [Concomitant]

REACTIONS (1)
  - BREAST CANCER [None]
